FAERS Safety Report 10274822 (Version 1)
Quarter: 2014Q3

REPORT INFORMATION
  Report Type: Spontaneous
  Country: GB (occurrence: GB)
  Receive Date: 20140702
  Receipt Date: 20140702
  Transmission Date: 20150326
  Serious: Yes (Other)
  Sender: FDA-Public Use
  Company Number: GB-MYLANLABS-2014S1014867

PATIENT
  Age: 72 Year
  Sex: Female
  Weight: 77 kg

DRUGS (15)
  1. RANITIDINE [Suspect]
     Active Substance: RANITIDINE\RANITIDINE HYDROCHLORIDE
     Route: 048
     Dates: start: 20140610, end: 20140611
  2. BECONASE AQ [Concomitant]
     Active Substance: BECLOMETHASONE DIPROPIONATE MONOHYDRATE
     Dates: start: 20140520
  3. FENBID [Concomitant]
     Active Substance: IBUPROFEN
     Dates: start: 20140317, end: 20140331
  4. SYSTANE [Concomitant]
     Active Substance: HYPROMELLOSE 2910 (4000 MPA.S)
     Dates: start: 20140606
  5. SYSTANE [Concomitant]
     Active Substance: HYPROMELLOSE 2910 (4000 MPA.S)
     Dates: start: 20140317, end: 20140414
  6. COCODAMOL [Concomitant]
     Active Substance: ACETAMINOPHEN\CODEINE PHOSPHATE
     Dates: start: 20140507, end: 20140519
  7. BISOPROLOL [Concomitant]
     Active Substance: BISOPROLOL
     Dates: start: 20140317
  8. NASEPTIN [Concomitant]
     Dates: start: 20140325, end: 20140408
  9. ESTRADIOL. [Concomitant]
     Active Substance: ESTRADIOL
     Dates: start: 20140410
  10. CHLORAMPHENICOL [Concomitant]
     Active Substance: CHLORAMPHENICOL
     Dates: start: 20140410, end: 20140411
  11. CLOPIDOGREL [Concomitant]
     Active Substance: CLOPIDOGREL BISULFATE
     Dates: start: 20140317
  12. GABAPENTIN. [Concomitant]
     Active Substance: GABAPENTIN
     Dates: start: 20140507, end: 20140606
  13. ROSUVASTATIN [Concomitant]
     Active Substance: ROSUVASTATIN
     Dates: start: 20140410
  14. TIMODINE /00446501/ [Concomitant]
     Dates: start: 20140325, end: 20140401
  15. LIDOCAINE. [Concomitant]
     Active Substance: LIDOCAINE
     Dates: start: 20140403, end: 20140404

REACTIONS (2)
  - Chest discomfort [Recovered/Resolved]
  - Dyspepsia [Recovered/Resolved]

NARRATIVE: CASE EVENT DATE: 20140610
